FAERS Safety Report 4319954-7 (Version None)
Quarter: 2004Q1

REPORT INFORMATION
  Report Type: 
  Country: None (occurrence: None)
  Receive Date: 20040317
  Receipt Date: 20040301
  Transmission Date: 20041129
  Serious: Yes (Death, Hospitalization)
  Sender: FDA-Public Use
  Company Number: A-US2002-00122

PATIENT
  Age: 73 Year
  Sex: Female
  Weight: 105.7 kg

DRUGS (9)
  1. TRACLEER [Suspect]
     Indication: PULMONARY HYPERTENSION
     Dosage: 125 MG, BID, ORAL
     Route: 048
     Dates: start: 20020212
  2. PREDNISONE [Concomitant]
  3. FLOVENT [Concomitant]
  4. PRILOSEC [Concomitant]
  5. LASIX [Concomitant]
  6. CARDIZEM [Concomitant]
  7. ZOLOFT [Concomitant]
  8. ALDACTONE [Concomitant]
  9. ALLOPURINOL [Concomitant]

REACTIONS (4)
  - CARDIAC FAILURE CONGESTIVE [None]
  - GASTROINTESTINAL HAEMORRHAGE [None]
  - GASTROINTESTINAL OEDEMA [None]
  - SWELLING [None]
